FAERS Safety Report 7285772-3 (Version None)
Quarter: 2011Q1

REPORT INFORMATION
  Report Type: 
  Country: None (occurrence: None)
  Receive Date: 20110210
  Receipt Date: 20110207
  Transmission Date: 20110831
  Serious: Yes (Hospitalization, Other)
  Sender: FDA-Public Use
  Company Number: BR-ABBOTT-11P-020-0703487-00

PATIENT
  Sex: Male

DRUGS (2)
  1. HUMIRA [Suspect]
     Dates: end: 20110101
  2. HUMIRA [Suspect]
     Indication: CROHN'S DISEASE
     Dosage: 80MG
     Route: 058
     Dates: start: 20100201, end: 20100201

REACTIONS (3)
  - CROHN'S DISEASE [None]
  - TUBERCULOSIS [None]
  - PANCREATITIS [None]
